FAERS Safety Report 9656747 (Version 1)
Quarter: 2013Q4

REPORT INFORMATION
  Report Type: Spontaneous
  Country: US (occurrence: None)
  Receive Date: 20131017
  Receipt Date: 20131017
  Transmission Date: 20140711
  Serious: Yes (Hospitalization)
  Sender: FDA-Public Use
  Company Number: 2013038389

PATIENT
  Age: 52 Year
  Sex: Male

DRUGS (15)
  1. BERINERT P (C1 ESTERASE INHIBITOR, HUMAN) [Suspect]
     Indication: IDIOPATHIC ANGIOEDEMA
     Dosage: 1500 IU QD, ONE VIAL OF 500 IU OF C1 ESTERASE
     Route: 042
     Dates: start: 20130621, end: 20130621
  2. CLOPIDOGREL (CLOPIDOGREL) [Concomitant]
  3. DEXCHLORPHENIRAMINE (DEXCHLORPHENIRAMINE) [Concomitant]
  4. OMEPRAZOLE (OMEPRAZOLE) [Concomitant]
  5. DANAZOL [Concomitant]
  6. IPRATROPIUM BROMIDE (IPRATROPIUM BROMIDE) [Concomitant]
  7. DAPSONE (DAPSONE) [Concomitant]
  8. SALBUTAMOL (SALBUTAMOL) [Concomitant]
  9. COLCHICINE (COLCHICINE) [Concomitant]
  10. RANITIDINE (RANITIDINE) [Concomitant]
  11. METHYLPREDNISOLONE (METHYLPREDNISOLONE) [Concomitant]
  12. MONTELUKAST (MONTELUKAST) [Concomitant]
  13. LOSARTAN POTASSIUM (LOSARTAN POTASSIUM) [Concomitant]
  14. IRON SUCCINYL PROTEIN COMPLEX (IRON SUCCINYL-PROTEIN COMPLEX) [Concomitant]
  15. FLUTICASONE PROPIONATE W/SALMETEROL (FLUTICASONE PROPIONATE W/SALMETEROL) [Concomitant]

REACTIONS (1)
  - Infusion site thrombosis [None]
